FAERS Safety Report 6868025-4 (Version None)
Quarter: 2010Q3

REPORT INFORMATION
  Report Type: 
  Country: None (occurrence: None)
  Receive Date: 20100722
  Receipt Date: 20081214
  Transmission Date: 20110219
  Serious: No
  Sender: FDA-Public Use
  Company Number: US-PFIZER INC-2008040870

PATIENT
  Sex: Male
  Weight: 79.545 kg

DRUGS (3)
  1. CHANTIX [Suspect]
     Indication: SMOKING CESSATION THERAPY
     Dosage: 0.5 MG, 1X/DAY
     Route: 048
     Dates: start: 20080506
  2. TUMS [Concomitant]
     Indication: DYSPEPSIA
  3. ANTIBIOTICS [Concomitant]
     Indication: TOOTH LOSS

REACTIONS (7)
  - DYSPEPSIA [None]
  - FLATULENCE [None]
  - FOOD POISONING [None]
  - HEADACHE [None]
  - INSOMNIA [None]
  - NAUSEA [None]
  - STRESS [None]
